FAERS Safety Report 15810810 (Version 1)
Quarter: 2019Q1

REPORT INFORMATION
  Report Type: Spontaneous
  Country: US (occurrence: US)
  Receive Date: 20190111
  Receipt Date: 20190111
  Transmission Date: 20190417
  Serious: No
  Sender: FDA-Public Use
  Company Number: US-TEVA-2018-US-990850

PATIENT
  Sex: Male

DRUGS (1)
  1. CLONAZEPAM. [Suspect]
     Active Substance: CLONAZEPAM
     Dates: start: 201806

REACTIONS (5)
  - Arthralgia [Unknown]
  - Headache [Unknown]
  - Vomiting [Unknown]
  - Food allergy [Unknown]
  - Fatigue [Unknown]

NARRATIVE: CASE EVENT DATE: 201806
